FAERS Safety Report 22013940 (Version 1)
Quarter: 2023Q1

REPORT INFORMATION
  Report Type: Report from Study
  Country: US (occurrence: US)
  Receive Date: 20230221
  Receipt Date: 20230221
  Transmission Date: 20230417
  Serious: No
  Sender: FDA-Public Use
  Company Number: US-BRISTOL-MYERS SQUIBB COMPANY-2023-024989

PATIENT
  Age: 34 Year
  Sex: Female

DRUGS (1)
  1. ZEPOSIA [Suspect]
     Active Substance: OZANIMOD HYDROCHLORIDE
     Indication: Product used for unknown indication
     Dosage: PATIENT LAST DOSE OF START KIT WAS 27-DEC-2022?ESTIMATED START DATE - 21-NOV-2022
     Dates: start: 202211, end: 202301

REACTIONS (1)
  - Maternal exposure during pregnancy [Unknown]
